FAERS Safety Report 5447384-3 (Version None)
Quarter: 2007Q3

REPORT INFORMATION
  Report Type: 
  Country: None (occurrence: None)
  Receive Date: 20070905
  Receipt Date: 20070711
  Transmission Date: 20080115
  Serious: Yes (Death)
  Sender: FDA-Public Use
  Company Number: 2007SP013989

PATIENT
  Age: 59 Year
  Sex: Female

DRUGS (1)
  1. TEMODAL [Suspect]
     Indication: GLIOBLASTOMA
     Dosage: 320 MG;QD;PO
     Route: 048
     Dates: start: 20061114, end: 20070101

REACTIONS (1)
  - DEATH [None]
